FAERS Safety Report 4326808-9 (Version None)
Quarter: 2004Q1

REPORT INFORMATION
  Report Type: 
  Country: None (occurrence: None)
  Receive Date: 20040330
  Receipt Date: 20020509
  Transmission Date: 20041129
  Serious: Yes (Other)
  Sender: FDA-Public Use
  Company Number: PHEH2002US04416

PATIENT
  Sex: Female
  Weight: 48 kg

DRUGS (2)
  1. TRILEPTAL [Suspect]
     Indication: BIPOLAR DISORDER
     Dosage: 2100MG PER DAY
     Route: 048
  2. TRILEPTAL [Suspect]
     Route: 048
     Dates: start: 20010901

REACTIONS (5)
  - DISORIENTATION [None]
  - INFERTILITY FEMALE [None]
  - MANIA [None]
  - MENSTRUAL DISORDER [None]
  - PREMENSTRUAL SYNDROME [None]
